FAERS Safety Report 11011575 (Version 2)
Quarter: 2015Q2

REPORT INFORMATION
  Report Type: Report from Study
  Country: BE (occurrence: BE)
  Receive Date: 20150410
  Receipt Date: 20150422
  Transmission Date: 20150821
  Serious: Yes (Hospitalization)
  Sender: FDA-Public Use
  Company Number: BE-ASTRAZENECA-2015SE28791

PATIENT
  Age: 22279 Day
  Sex: Female

DRUGS (14)
  1. AZD2281 [Suspect]
     Active Substance: OLAPARIB
     Indication: OVARIAN CANCER METASTATIC
     Route: 048
     Dates: start: 20141120, end: 20141120
  2. AZD2281 [Suspect]
     Active Substance: OLAPARIB
     Indication: OVARIAN CANCER METASTATIC
     Route: 048
     Dates: start: 20150323, end: 20150323
  3. PREDNISOLONE. [Concomitant]
     Active Substance: PREDNISOLONE
     Indication: ABDOMINAL PAIN
     Route: 048
  4. AZD2281 [Suspect]
     Active Substance: OLAPARIB
     Indication: OVARIAN CANCER METASTATIC
     Route: 048
     Dates: start: 20141114, end: 20141119
  5. CACO3 [Concomitant]
     Indication: CALCIUM DEFICIENCY
     Route: 048
  6. AZD2281 [Suspect]
     Active Substance: OLAPARIB
     Indication: OVARIAN CANCER METASTATIC
     Route: 048
     Dates: start: 20141224, end: 20141230
  7. LYRICA [Concomitant]
     Active Substance: PREGABALIN
     Indication: OSTEOARTHRITIS
  8. OMEPRAZOLE. [Concomitant]
     Active Substance: OMEPRAZOLE
     Indication: GASTROOESOPHAGEAL REFLUX DISEASE
     Route: 048
     Dates: start: 20140901
  9. AZD2281 [Suspect]
     Active Substance: OLAPARIB
     Indication: OVARIAN CANCER METASTATIC
     Route: 048
     Dates: start: 20141231, end: 20150322
  10. MAGNECAP [Concomitant]
     Indication: HYPOMAGNESAEMIA
     Route: 048
     Dates: start: 20141231
  11. TRAMIUM [Concomitant]
     Indication: ABDOMINAL PAIN
     Route: 048
  12. LYSOMUCL [Concomitant]
     Indication: HYPOMAGNESAEMIA
     Route: 048
     Dates: start: 20150224, end: 20150309
  13. MOBILIUM [Concomitant]
     Indication: HYPOMAGNESAEMIA
     Route: 048
     Dates: start: 20150224, end: 20150309
  14. LETROZOLE. [Suspect]
     Active Substance: LETROZOLE
     Indication: OVARIAN CANCER METASTATIC
     Route: 065
     Dates: start: 20141125, end: 20141230

REACTIONS (1)
  - General physical health deterioration [Not Recovered/Not Resolved]

NARRATIVE: CASE EVENT DATE: 20150302
